FAERS Safety Report 18944885 (Version 1)
Quarter: 2021Q1

REPORT INFORMATION
  Report Type: Report from Study
  Country: US (occurrence: US)
  Receive Date: 20210226
  Receipt Date: 20210226
  Transmission Date: 20210420
  Serious: Yes (Other)
  Sender: FDA-Public Use
  Company Number: US-BAYER-2021-079637

PATIENT
  Age: 52 Year
  Sex: Female

DRUGS (4)
  1. ASPIRIN. [Suspect]
     Active Substance: ASPIRIN
     Dosage: 81 MG
  2. MONTELUKAST [Suspect]
     Active Substance: MONTELUKAST SODIUM
  3. KETOROLAC [Suspect]
     Active Substance: KETOROLAC TROMETHAMINE
  4. SABA [SERENOA REPENS] [Suspect]
     Active Substance: SERENOA REPENS WHOLE
     Dosage: {2X/MO

REACTIONS (1)
  - Aspirin-exacerbated respiratory disease [None]
